FAERS Safety Report 7750485-8 (Version None)
Quarter: 2011Q3

REPORT INFORMATION
  Report Type: 
  Country: None (occurrence: None)
  Receive Date: 20110914
  Receipt Date: 20110907
  Transmission Date: 20111222
  Serious: Yes (Hospitalization, Other)
  Sender: FDA-Public Use
  Company Number: US-ABBOTT-11P-163-0852050-00

PATIENT
  Sex: Female

DRUGS (2)
  1. HUMIRA [Suspect]
     Indication: SCLERODERMA
  2. HUMIRA [Suspect]
     Indication: RHEUMATOID ARTHRITIS
     Route: 058
     Dates: start: 20050101, end: 20081201

REACTIONS (7)
  - RETRACTED NIPPLE [None]
  - METASTASES TO LIVER [None]
  - BREAST CANCER [None]
  - METASTASES TO LYMPH NODES [None]
  - RHEUMATOID ARTHRITIS [None]
  - ARTHRITIS [None]
  - FEELING HOT [None]
